FAERS Safety Report 22653461 (Version 3)
Quarter: 2024Q2

REPORT INFORMATION
  Report Type: Report from Study
  Country: BE (occurrence: BE)
  Receive Date: 20230629
  Receipt Date: 20240416
  Transmission Date: 20240716
  Serious: Yes (Hospitalization, Other)
  Sender: FDA-Public Use
  Company Number: BE-KOREA IPSEN Pharma-2023-15164

PATIENT

DRUGS (23)
  1. CABOZANTINIB [Suspect]
     Active Substance: CABOZANTINIB
     Indication: Metastatic renal cell carcinoma
     Dosage: 40 MG, QD
     Route: 048
     Dates: start: 20230526, end: 20230616
  2. CABOZANTINIB [Suspect]
     Active Substance: CABOZANTINIB
     Dosage: 20 MG, QD
     Route: 048
     Dates: start: 20240208
  3. NIVOLUMAB [Concomitant]
     Active Substance: NIVOLUMAB
     Indication: Metastatic renal cell carcinoma
     Dosage: 240 MG
     Route: 042
     Dates: start: 20230526
  4. NIVOLUMAB [Concomitant]
     Active Substance: NIVOLUMAB
     Dosage: 240 MG
     Route: 042
     Dates: start: 20230623
  5. NIVOLUMAB [Concomitant]
     Active Substance: NIVOLUMAB
     Dosage: 240 MG
     Route: 042
     Dates: start: 20230707
  6. NIVOLUMAB [Concomitant]
     Active Substance: NIVOLUMAB
     Dosage: 240 MG
     Route: 042
     Dates: start: 20230720
  7. NIVOLUMAB [Concomitant]
     Active Substance: NIVOLUMAB
     Dosage: 240 MG
     Route: 042
     Dates: start: 20230817
  8. NIVOLUMAB [Concomitant]
     Active Substance: NIVOLUMAB
     Dosage: 240 MG
     Route: 042
     Dates: start: 20230914
  9. NIVOLUMAB [Concomitant]
     Active Substance: NIVOLUMAB
     Dosage: 240 MG
     Route: 042
     Dates: start: 20231012
  10. NIVOLUMAB [Concomitant]
     Active Substance: NIVOLUMAB
     Dosage: 240 MG
     Route: 042
     Dates: start: 20231109
  11. NIVOLUMAB [Concomitant]
     Active Substance: NIVOLUMAB
     Dosage: 240 MG
     Route: 042
     Dates: start: 20231207
  12. NIVOLUMAB [Concomitant]
     Active Substance: NIVOLUMAB
     Dosage: 240 MG
     Route: 042
     Dates: start: 20240111
  13. NIVOLUMAB [Concomitant]
     Active Substance: NIVOLUMAB
     Dosage: 240 MG
     Route: 042
     Dates: start: 20240208
  14. NIVOLUMAB [Concomitant]
     Active Substance: NIVOLUMAB
     Dosage: 240 MG
     Route: 042
     Dates: start: 20240307
  15. NIVOLUMAB [Concomitant]
     Active Substance: NIVOLUMAB
     Dosage: 240 MG
     Route: 042
     Dates: start: 20240321
  16. NIVOLUMAB [Concomitant]
     Active Substance: NIVOLUMAB
     Dosage: 240 MG
     Route: 042
     Dates: start: 20240405
  17. ARTERIN [Concomitant]
     Indication: Hypercholesterolaemia
     Dosage: 1 TABLET DAILY
     Route: 048
     Dates: start: 20230707, end: 20230820
  18. DESLORATADINE [Concomitant]
     Active Substance: DESLORATADINE
     Indication: Pruritus
     Route: 048
     Dates: start: 20230817
  19. CLOBETASOL [Concomitant]
     Active Substance: CLOBETASOL
     Indication: Pruritus
     Dosage: 0.05 %
     Route: 003
     Dates: start: 20230817
  20. MEDROL [Concomitant]
     Active Substance: METHYLPREDNISOLONE
     Indication: Colitis
     Route: 048
     Dates: start: 20230915, end: 20231012
  21. IMODIUM [Concomitant]
     Active Substance: LOPERAMIDE HYDROCHLORIDE
     Indication: Colitis
     Route: 048
     Dates: start: 20230914
  22. SOLU-MEDROL [Concomitant]
     Active Substance: METHYLPREDNISOLONE SODIUM SUCCINATE
     Indication: Colitis
     Route: 042
     Dates: start: 20230914, end: 20230914
  23. CETIRIZINE [Concomitant]
     Active Substance: CETIRIZINE HYDROCHLORIDE
     Indication: Pruritus
     Route: 048
     Dates: start: 20231109

REACTIONS (2)
  - Cerebral haemorrhage [Unknown]
  - Abdominal pain [Not Recovered/Not Resolved]

NARRATIVE: CASE EVENT DATE: 20230616
